FAERS Safety Report 6064978-5 (Version None)
Quarter: 2009Q1

REPORT INFORMATION
  Report Type: 
  Country: None (occurrence: None)
  Receive Date: 20090203
  Receipt Date: 20090203
  Transmission Date: 20090719
  Serious: Yes (Other)
  Sender: FDA-Public Use
  Company Number: None

PATIENT
  Age: 57 Year
  Sex: Female
  Weight: 87.5 kg

DRUGS (10)
  1. VARENICLINE 0.5MG PFIZER [Suspect]
     Indication: SMOKING CESSATION THERAPY
     Dosage: 0.5MG 3DAYS, BIDX4DAYS OP, 1MG TWICE DAILY PO
     Route: 048
     Dates: start: 20071127, end: 20071203
  2. VARENICLINE 0.5MG PFIZER [Suspect]
     Indication: SMOKING CESSATION THERAPY
     Dosage: 0.5MG 3DAYS, BIDX4DAYS OP, 1MG TWICE DAILY PO
     Route: 048
     Dates: start: 20071204, end: 20080211
  3. ALBUTEROL [Concomitant]
  4. AZITHROMYCIN [Concomitant]
  5. CYANOCOBALAMIN [Concomitant]
  6. FOLIC ACID [Concomitant]
  7. MOMETASONE FUROATE [Concomitant]
  8. PHENYTOIN NA -DILANTIN- [Concomitant]
  9. PREDNISONE [Concomitant]
  10. HYDROCOR/NEOMY/POLYMYX [Concomitant]

REACTIONS (7)
  - BLOOD PRESSURE INCREASED [None]
  - DEPRESSION [None]
  - INSOMNIA [None]
  - MENTAL IMPAIRMENT [None]
  - MICROANGIOPATHY [None]
  - ROAD TRAFFIC ACCIDENT [None]
  - SUICIDAL IDEATION [None]
